FAERS Safety Report 7935669-8 (Version None)
Quarter: 2011Q4

REPORT INFORMATION
  Report Type: 
  Country: None (occurrence: None)
  Receive Date: 20111121
  Receipt Date: 20111114
  Transmission Date: 20120403
  Serious: Yes (Hospitalization, Other)
  Sender: FDA-Public Use
  Company Number: AUR-APL-2011-05596

PATIENT
  Age: 80 Year
  Sex: Female

DRUGS (8)
  1. CIPROFLOXACIN [Suspect]
     Indication: URINARY TRACT INFECTION
     Dosage: 500 MG (250 MG,2 IN 1 D),ORAL
     Route: 048
     Dates: start: 20111018, end: 20111020
  2. COLCHICINE [Concomitant]
  3. PROTONIX [Concomitant]
  4. RAVATIO [Concomitant]
  5. LASIX [Concomitant]
  6. TENORMIN [Concomitant]
  7. ULORIC [Concomitant]
  8. CHLORCON [Concomitant]

REACTIONS (8)
  - SIALOADENITIS [None]
  - ASTHENIA [None]
  - HERPES ZOSTER [None]
  - MENTAL STATUS CHANGES [None]
  - ORAL INFECTION [None]
  - DYSPHAGIA [None]
  - ABASIA [None]
  - DYSSTASIA [None]
